FAERS Safety Report 7310873-0 (Version None)
Quarter: 2011Q1

REPORT INFORMATION
  Report Type: 
  Country: None (occurrence: None)
  Receive Date: 20110224
  Receipt Date: 20110217
  Transmission Date: 20110831
  Serious: Yes (Other)
  Sender: FDA-Public Use
  Company Number: GB-GENZYME-POMP-1001306

PATIENT
  Age: 64 Year
  Sex: Male

DRUGS (4)
  1. FLUOXETINE [Concomitant]
     Indication: PRODUCT USED FOR UNKNOWN INDICATION
     Dosage: UNK
     Route: 065
  2. MYOZYME [Suspect]
     Indication: GLYCOGEN STORAGE DISEASE TYPE II
     Dosage: 20 MG/KG, Q2W
     Route: 042
     Dates: start: 20070315
  3. QUININE SULFATE [Concomitant]
     Indication: MUSCLE SPASMS
     Dosage: UNK
     Route: 065
  4. ASPIRIN [Concomitant]
     Indication: PRODUCT USED FOR UNKNOWN INDICATION
     Dosage: UNK
     Route: 048

REACTIONS (3)
  - PERIPHERAL COLDNESS [None]
  - DYSGEUSIA [None]
  - CYANOSIS [None]
